FAERS Safety Report 5363495-5 (Version None)
Quarter: 2007Q2

REPORT INFORMATION
  Report Type: 
  Country: None (occurrence: None)
  Receive Date: 20070620
  Receipt Date: 20070607
  Transmission Date: 20071010
  Serious: Yes (Death)
  Sender: FDA-Public Use
  Company Number: JP-ROCHE-491081

PATIENT
  Age: 57 Year
  Sex: Male
  Weight: 70 kg

DRUGS (14)
  1. TAMIFLU [Suspect]
     Route: 048
     Dates: start: 20070325, end: 20070325
  2. CALONAL [Suspect]
     Route: 048
     Dates: start: 20070324, end: 20070324
  3. BLOPRESS [Concomitant]
     Route: 048
     Dates: end: 20070326
  4. CARDENALIN [Concomitant]
     Route: 048
     Dates: end: 20070326
  5. KREMEZIN [Concomitant]
     Dosage: FORM: FINE GRANULE.
     Route: 048
     Dates: end: 20070326
  6. SODIUM BICARBONATE [Concomitant]
     Dosage: DRUG NAME REPORTED AS JUSO.
     Route: 048
     Dates: end: 20070326
  7. SALOBEL [Concomitant]
     Route: 048
     Dates: end: 20070326
  8. GASTER D [Concomitant]
     Route: 048
     Dates: end: 20070326
  9. CALTAN [Concomitant]
     Route: 048
     Dates: start: 20070314, end: 20070326
  10. PLETAL [Concomitant]
     Route: 048
     Dates: start: 20070323, end: 20070326
  11. TAZOCIN [Concomitant]
     Route: 042
     Dates: start: 20070324, end: 20070325
  12. CARBENIN [Concomitant]
     Route: 041
     Dates: start: 20070325, end: 20070326
  13. VENOGLOBULIN [Concomitant]
     Route: 042
     Dates: start: 20070325, end: 20070326
  14. AMLODIN [Concomitant]
     Route: 048
     Dates: end: 20070326

REACTIONS (1)
  - CONVULSION [None]
